FAERS Safety Report 10258145 (Version 1)
Quarter: 2014Q2

REPORT INFORMATION
  Report Type: Spontaneous
  Country: US (occurrence: None)
  Receive Date: 20140623
  Receipt Date: 20140623
  Transmission Date: 20141212
  Serious: Yes (Other)
  Sender: FDA-Public Use
  Company Number: None

PATIENT
  Age: 66 Year
  Sex: Female
  Weight: 121.11 kg

DRUGS (15)
  1. VICTOZA [Suspect]
     Indication: TYPE 2 DIABETES MELLITUS
     Route: 058
     Dates: start: 20120404, end: 20140412
  2. ASPIRIN [Concomitant]
  3. AVAPRO [Concomitant]
  4. CITALOPRAM [Concomitant]
  5. COQ10 [Concomitant]
  6. FISH OIL [Concomitant]
  7. FLAX SEED [Concomitant]
  8. GLUCOTROL XL [Concomitant]
  9. HCTZ [Concomitant]
  10. LEVEMIR [Concomitant]
  11. LIVALO [Concomitant]
  12. MULTIVITAMIN [Concomitant]
  13. OMEPRAZOLE [Concomitant]
  14. TRICOR [Concomitant]
  15. VITAMIN D [Concomitant]

REACTIONS (1)
  - Medullary thyroid cancer [None]
